FAERS Safety Report 13008047 (Version 4)
Quarter: 2017Q1

REPORT INFORMATION
  Report Type: Report from Study
  Country: US (occurrence: US)
  Receive Date: 20161208
  Receipt Date: 20170223
  Transmission Date: 20170428
  Serious: Yes (Hospitalization, Other)
  Sender: FDA-Public Use
  Company Number: US-AMGEN-USASL2016169159

PATIENT
  Age: 66 Year
  Sex: Male

DRUGS (3)
  1. ENBREL [Suspect]
     Active Substance: ETANERCEPT
     Indication: ANKYLOSING SPONDYLITIS
     Dosage: 50 MG, QWK
     Route: 065
     Dates: start: 2007, end: 201604
  2. ENBREL [Suspect]
     Active Substance: ETANERCEPT
     Dosage: 50 MG, QWK
     Route: 065
  3. CELEBREX [Concomitant]
     Active Substance: CELECOXIB
     Dosage: UNK

REACTIONS (18)
  - Feeling abnormal [Unknown]
  - Decreased activity [Unknown]
  - Nerve compression [Unknown]
  - Adverse event [Unknown]
  - Impaired healing [Unknown]
  - Red blood cell sedimentation rate abnormal [Unknown]
  - Hypophagia [Unknown]
  - Spinal compression fracture [Unknown]
  - Gait disturbance [Unknown]
  - Hallucination [Unknown]
  - Pneumonia [Recovered/Resolved]
  - Weight decreased [Unknown]
  - Decreased appetite [Unknown]
  - Ageusia [Unknown]
  - Delirium [Unknown]
  - Intervertebral disc protrusion [Unknown]
  - Mobility decreased [Unknown]
  - Pain [Unknown]

NARRATIVE: CASE EVENT DATE: 2016
